FAERS Safety Report 11731989 (Version 1)
Quarter: 2015Q4

REPORT INFORMATION
  Report Type: Spontaneous
  Country: US (occurrence: US)
  Receive Date: 20151110
  Receipt Date: 20151110
  Transmission Date: 20160304
  Serious: No
  Sender: FDA-Public Use
  Company Number: US-ELI_LILLY_AND_COMPANY-US201110005602

PATIENT
  Age: 66 Year
  Sex: Female

DRUGS (10)
  1. FORTEO [Suspect]
     Active Substance: TERIPARATIDE
     Dosage: 20 UG, QD
  2. FOSAMAX [Concomitant]
     Active Substance: ALENDRONATE SODIUM
  3. MIACALCIN [Concomitant]
     Active Substance: CALCITONIN SALMON
  4. FLU [Concomitant]
     Active Substance: INFLUENZA VIRUS VACCINE
  5. ACTONEL [Concomitant]
     Active Substance: RISEDRONATE SODIUM
  6. FORTEO [Suspect]
     Active Substance: TERIPARATIDE
     Indication: OSTEOPOROSIS
     Dosage: 20 UG, QD
     Dates: start: 20110712
  7. OMEPRAZOLE. [Concomitant]
     Active Substance: OMEPRAZOLE
     Indication: GALLBLADDER DISORDER
  8. ZANTAC [Concomitant]
     Active Substance: RANITIDINE HYDROCHLORIDE
     Indication: GALLBLADDER DISORDER
  9. FORTEO [Suspect]
     Active Substance: TERIPARATIDE
     Dosage: 20 UG, QD
  10. FORTEO [Suspect]
     Active Substance: TERIPARATIDE
     Dosage: 20 UG, QD

REACTIONS (20)
  - Back pain [Unknown]
  - Hypersomnia [Unknown]
  - Decreased appetite [Recovering/Resolving]
  - Fatigue [Unknown]
  - Cough [Not Recovered/Not Resolved]
  - Meniscus injury [Recovered/Resolved]
  - Chest pain [Not Recovered/Not Resolved]
  - Gastrooesophageal reflux disease [Recovered/Resolved]
  - Sleep disorder due to a general medical condition [Unknown]
  - Pain [Not Recovered/Not Resolved]
  - Pain [Unknown]
  - Asthenia [Unknown]
  - Back pain [Not Recovered/Not Resolved]
  - Malaise [Recovering/Resolving]
  - Nasopharyngitis [Unknown]
  - Rhinorrhoea [Unknown]
  - Asthma [Unknown]
  - Oropharyngeal pain [Unknown]
  - Weight decreased [Unknown]
  - Nausea [Unknown]

NARRATIVE: CASE EVENT DATE: 201110
